FAERS Safety Report 19432120 (Version 2)
Quarter: 2021Q3

REPORT INFORMATION
  Report Type: Spontaneous
  Country: US (occurrence: US)
  Receive Date: 20210617
  Receipt Date: 20210809
  Transmission Date: 20211014
  Serious: No
  Sender: FDA-Public Use
  Company Number: US-ASTRAZENECA-2021A511456

PATIENT
  Age: 93 Year
  Sex: Female
  Weight: 57.6 kg

DRUGS (1)
  1. TUDORZA PRESSAIR [Suspect]
     Active Substance: ACLIDINIUM BROMIDE
     Indication: CHRONIC OBSTRUCTIVE PULMONARY DISEASE
     Dosage: 400UG/INHAL TWO TIMES A DAY
     Route: 055
     Dates: start: 2011

REACTIONS (4)
  - Device defective [Unknown]
  - Glaucoma [Unknown]
  - Eye disorder [Unknown]
  - Drug dose omission by device [Unknown]

NARRATIVE: CASE EVENT DATE: 2020
